FAERS Safety Report 14290647 (Version 4)
Quarter: 2018Q1

REPORT INFORMATION
  Report Type: Report from Study
  Country: JP (occurrence: JP)
  Receive Date: 20171215
  Receipt Date: 20180213
  Transmission Date: 20180509
  Serious: Yes (Hospitalization)
  Sender: FDA-Public Use
  Company Number: JP-VIIV HEALTHCARE LIMITED-JP2015JPN109579

PATIENT
  Age: 4 Decade
  Sex: Male

DRUGS (8)
  1. EDURANT [Concomitant]
     Active Substance: RILPIVIRINE HYDROCHLORIDE
     Indication: HIV INFECTION
     Dosage: 25 MG, UNK
     Dates: start: 20130401, end: 20131215
  2. DOLUTEGRAVIR [Suspect]
     Active Substance: DOLUTEGRAVIR
     Indication: HIV INFECTION
     Dosage: 50 MG, 1D
     Route: 048
     Dates: start: 20140616
  3. TRUVADA [Suspect]
     Active Substance: EMTRICITABINE\TENOFOVIR DISOPROXIL FUMARATE
     Indication: HIV INFECTION
     Dosage: 1 DF, 1D
     Route: 048
     Dates: start: 20081022
  4. NORVIR [Concomitant]
     Active Substance: RITONAVIR
     Indication: HIV INFECTION
     Dosage: 100 MG, UNK
     Dates: start: 20110801, end: 20140615
  5. PREZISTANAIVE [Concomitant]
     Active Substance: DARUNAVIR
     Dosage: 800 MG, QD
     Dates: start: 20140414, end: 20140615
  6. URSO [Concomitant]
     Active Substance: URSODIOL
     Indication: CHRONIC HEPATITIS C
     Dosage: 200 MG, TID
     Dates: start: 20140401, end: 20140616
  7. PREZISTANAIVE [Concomitant]
     Active Substance: DARUNAVIR
     Indication: HIV INFECTION
     Dosage: 400 MG ?2 TABLETS, QD
     Dates: start: 20120416, end: 20140413
  8. FLUMARIN (JAPAN) [Concomitant]
     Indication: INFECTION PROPHYLAXIS
     Dosage: 1 G, BID
     Dates: start: 20160824, end: 20160826

REACTIONS (3)
  - Abdominal pain [Not Recovered/Not Resolved]
  - Salivary gland calculus [Recovering/Resolving]
  - Hepatic enzyme increased [Not Recovered/Not Resolved]

NARRATIVE: CASE EVENT DATE: 20140714
